FAERS Safety Report 4414070-8 (Version None)
Quarter: 2004Q3

REPORT INFORMATION
  Report Type: 
  Country: None (occurrence: None)
  Receive Date: 20040728
  Receipt Date: 20040713
  Transmission Date: 20050211
  Serious: Yes (Hospitalization)
  Sender: FDA-Public Use
  Company Number: 2004IM000280

PATIENT
  Age: 55 Year
  Sex: Male

DRUGS (1)
  1. ADVAFERON (A643_INTERFERON ALFACON-1) [Suspect]
     Indication: HEPATITIS C
     Dosage: 18 MY; QD; SUBCUTANEOUS
     Route: 058
     Dates: start: 20020124, end: 20020703

REACTIONS (8)
  - AMMONIA INCREASED [None]
  - ANOREXIA [None]
  - DEPRESSED LEVEL OF CONSCIOUSNESS [None]
  - DISORIENTATION [None]
  - EXCITABILITY [None]
  - INSOMNIA [None]
  - NEUROLOGICAL SYMPTOM [None]
  - PSYCHIATRIC SYMPTOM [None]
